FAERS Safety Report 7032356-8 (Version None)
Quarter: 2010Q4

REPORT INFORMATION
  Report Type: 
  Country: None (occurrence: None)
  Receive Date: 20101007
  Receipt Date: 20100720
  Transmission Date: 20110411
  Serious: Yes (Death, Hospitalization)
  Sender: FDA-Public Use
  Company Number: ES-BRISTOL-MYERS SQUIBB COMPANY-15208853

PATIENT
  Age: 61 Year
  Sex: Male

DRUGS (2)
  1. CETUXIMAB [Suspect]
     Indication: HEAD AND NECK CANCER
     Route: 042
     Dates: start: 20090415, end: 20090605
  2. RADIOTHERAPY [Suspect]
     Indication: HEAD AND NECK CANCER
     Dosage: 1 DF = 70 GY
     Route: 042
     Dates: start: 20090424, end: 20090626

REACTIONS (2)
  - DEVICE RELATED INFECTION [None]
  - RENAL FAILURE [None]
